FAERS Safety Report 8860679 (Version 1)
Quarter: 2012Q4

REPORT INFORMATION
  Report Type: 
  Country: US (occurrence: US)
  Receive Date: 20121025
  Receipt Date: 20121025
  Transmission Date: 20130627
  Serious: No
  Sender: FDA-Public Use
  Company Number: US-AMGEN-USASP2012015204

PATIENT
  Age: 46 Year
  Sex: Female

DRUGS (5)
  1. ENBREL [Suspect]
     Dosage: 50 mg, qwk
  2. LEFLUNOMIDE [Concomitant]
     Dosage: 10 mg, UNK
  3. LABETALOL [Concomitant]
     Dosage: 200 mg, UNK
  4. IBUPROFEN [Concomitant]
     Dosage: 200 mg, UNK
  5. EXCEDRIN MIGRAINE [Concomitant]
     Dosage: UNK

REACTIONS (3)
  - Nasopharyngitis [Recovered/Resolved]
  - Injection site swelling [Recovered/Resolved with Sequelae]
  - Injection site erythema [Recovered/Resolved with Sequelae]
